FAERS Safety Report 11513616 (Version 1)
Quarter: 2015Q3

REPORT INFORMATION
  Report Type: Spontaneous
  Country: US (occurrence: US)
  Receive Date: 20150903
  Receipt Date: 20150903
  Transmission Date: 20151125
  Serious: No
  Sender: FDA-Public Use
  Company Number: US-ELI_LILLY_AND_COMPANY-US201211004102

PATIENT
  Age: 57 Year
  Sex: Female

DRUGS (3)
  1. LORTAB [Concomitant]
     Active Substance: ACETAMINOPHEN\HYDROCODONE BITARTRATE
  2. CYMBALTA [Suspect]
     Active Substance: DULOXETINE HYDROCHLORIDE
     Indication: DEPRESSION
     Dosage: 60 MG, QD
     Dates: end: 201208
  3. SOMA [Concomitant]
     Active Substance: CARISOPRODOL

REACTIONS (4)
  - Back pain [Unknown]
  - Weight increased [Unknown]
  - Decreased appetite [Unknown]
  - Hypophagia [Unknown]
